FAERS Safety Report 13230902 (Version 2)
Quarter: 2017Q1

REPORT INFORMATION
  Report Type: Spontaneous
  Country: CZ (occurrence: CZ)
  Receive Date: 20170214
  Receipt Date: 20170313
  Transmission Date: 20170428
  Serious: Yes (Life-Threatening)
  Sender: FDA-Public Use
  Company Number: CZ-CELGENEUS-CZE-2017020459

PATIENT
  Age: 68 Year
  Sex: Male

DRUGS (3)
  1. DEXAMETHASONE. [Concomitant]
     Active Substance: DEXAMETHASONE
     Route: 065
  2. REVLIMID [Suspect]
     Active Substance: LENALIDOMIDE
     Indication: PRODUCT USED FOR UNKNOWN INDICATION
     Route: 048
     Dates: start: 201602
  3. DEXAMETHASONE. [Concomitant]
     Active Substance: DEXAMETHASONE
     Indication: PLASMA CELL MYELOMA
     Route: 065
     Dates: start: 201511, end: 201602

REACTIONS (5)
  - Malignant hypertension [Unknown]
  - Pulmonary haemorrhage [Unknown]
  - Sepsis [Unknown]
  - Liver disorder [Unknown]
  - Thrombocytopenia [Unknown]
